FAERS Safety Report 8240773-3 (Version None)
Quarter: 2012Q1

REPORT INFORMATION
  Report Type: 
  Country: None (occurrence: None)
  Receive Date: 20120328
  Receipt Date: 20120322
  Transmission Date: 20120608
  Serious: Yes (Disabling, Other)
  Sender: FDA-Public Use
  Company Number: PHHY2012CA009047

PATIENT
  Sex: Female

DRUGS (5)
  1. GABAPENTIN [Concomitant]
     Dosage: UNK UKN, UNK
  2. LEVOTHYROXINE SODIUM [Concomitant]
     Dosage: UNK UKN, UNK
  3. AMITRIPTYLINE HCL [Concomitant]
     Dosage: UNK UKN, UNK
  4. ZOLEDRONOC ACID [Suspect]
     Indication: OSTEOPOROSIS
     Dosage: UNK UKN, UNK
     Route: 042
     Dates: start: 20120109
  5. LANSOPRAZOLE [Concomitant]
     Dosage: UNK UKN, UNK

REACTIONS (4)
  - PAIN IN EXTREMITY [None]
  - OEDEMA PERIPHERAL [None]
  - OPEN WOUND [None]
  - RASH [None]
